FAERS Safety Report 4325673-3 (Version None)
Quarter: 2004Q1

REPORT INFORMATION
  Report Type: 
  Country: None (occurrence: None)
  Receive Date: 20040324
  Receipt Date: 20040308
  Transmission Date: 20041129
  Serious: No
  Sender: FDA-Public Use
  Company Number: PHNU2004DE00987

PATIENT
  Age: 46 Year
  Sex: Female
  Weight: 60.0109 kg

DRUGS (1)
  1. VISUDYNE [Suspect]
     Indication: MYOPIA
     Dosage: 5 MG ONCE IV
     Route: 042
     Dates: start: 20040223, end: 20040223

REACTIONS (6)
  - ANXIETY [None]
  - BLOOD PRESSURE DECREASED [None]
  - HEADACHE [None]
  - HEART RATE DECREASED [None]
  - HYPOAESTHESIA [None]
  - NAUSEA [None]
